FAERS Safety Report 5027626-9 (Version None)
Quarter: 2006Q2

REPORT INFORMATION
  Report Type: 
  Country: None (occurrence: None)
  Receive Date: 20060428
  Receipt Date: 20060112
  Transmission Date: 20061013
  Serious: No
  Sender: FDA-Public Use
  Company Number: COT_0377_2006

PATIENT
  Age: 35 Year
  Sex: Female
  Weight: 63.5036 kg

DRUGS (17)
  1. VENTAVIS [Suspect]
     Indication: PULMONARY HYPERTENSION
     Dosage: 5 MCG 6XD IH
     Dates: start: 20051031
  2. LASIX [Concomitant]
  3. MORPHINE SULFATE [Concomitant]
  4. FOLIC ACID [Concomitant]
  5. FORTEO [Concomitant]
  6. PLAQUENIL [Concomitant]
  7. OS-CAL [Concomitant]
  8. KLOR-CON [Concomitant]
  9. ALLEGRA [Concomitant]
  10. IRON [Concomitant]
  11. TRAZODONE HCL [Concomitant]
  12. SILDENAFIL [Concomitant]
  13. PREVACID [Concomitant]
  14. PREDNISONE [Concomitant]
  15. NEURONTIN [Concomitant]
  16. NEUPOGEN [Concomitant]
  17. COUMADIN [Concomitant]

REACTIONS (2)
  - FLUSHING [None]
  - NASAL CONGESTION [None]
